FAERS Safety Report 5001742-X (Version None)
Quarter: 2006Q2

REPORT INFORMATION
  Report Type: 
  Country: None (occurrence: None)
  Receive Date: 20060512
  Receipt Date: 20060512
  Transmission Date: 20061013
  Serious: No
  Sender: FDA-Public Use
  Company Number: None

PATIENT
  Age: 41 Year
  Sex: Female
  Weight: 49.8957 kg

DRUGS (2)
  1. MEPROZINE [Suspect]
     Indication: PAIN
     Dosage: 1 TABLET  Q4H  PO
     Route: 048
     Dates: start: 20060420, end: 20060425
  2. MEPROZINE [Suspect]
     Indication: SURGERY
     Dosage: 1 TABLET  Q4H  PO
     Route: 048
     Dates: start: 20060420, end: 20060425

REACTIONS (11)
  - DIZZINESS [None]
  - DYSPNOEA [None]
  - DYSURIA [None]
  - HALLUCINATION [None]
  - HEADACHE [None]
  - HEART RATE INCREASED [None]
  - MUSCLE TWITCHING [None]
  - NAUSEA [None]
  - PARAESTHESIA [None]
  - SUICIDAL IDEATION [None]
  - SYNCOPE [None]
